FAERS Safety Report 7350332-2 (Version None)
Quarter: 2011Q1

REPORT INFORMATION
  Report Type: 
  Country: None (occurrence: None)
  Receive Date: 20110314
  Receipt Date: 20110304
  Transmission Date: 20110831
  Serious: Yes (Hospitalization)
  Sender: FDA-Public Use
  Company Number: US-ASTRAZENECA-2011SE12650

PATIENT
  Age: 75 Year
  Sex: Female

DRUGS (3)
  1. CRESTOR [Suspect]
     Route: 048
  2. ASPIRIN [Concomitant]
  3. FISH OIL [Concomitant]

REACTIONS (5)
  - CARDIAC OPERATION [None]
  - DYSPNOEA [None]
  - EXOSTOSIS [None]
  - STENT PLACEMENT [None]
  - DRUG EFFECT DECREASED [None]
